FAERS Safety Report 23887907 (Version 1)
Quarter: 2024Q2

REPORT INFORMATION
  Report Type: Spontaneous
  Country: IT (occurrence: IT)
  Receive Date: 20240523
  Receipt Date: 20240523
  Transmission Date: 20240716
  Serious: Yes (Hospitalization)
  Sender: FDA-Public Use
  Company Number: IT-ROVI-20240302

PATIENT
  Age: 47 Year
  Sex: Male

DRUGS (2)
  1. RISPERIDONE [Suspect]
     Active Substance: RISPERIDONE
     Indication: Bipolar disorder
  2. Risperidone 6 mg [Concomitant]
     Indication: Bipolar disorder relapse prophylaxis

REACTIONS (3)
  - Bipolar disorder [Recovering/Resolving]
  - Off label use [Unknown]
  - Intentional product misuse [Unknown]
